FAERS Safety Report 25631130 (Version 1)
Quarter: 2025Q3

REPORT INFORMATION
  Report Type: Other
  Country: CN (occurrence: CN)
  Receive Date: 20250801
  Receipt Date: 20250801
  Transmission Date: 20251020
  Serious: Yes (Other)
  Sender: Phathom Pharmaceuticals
  Company Number: CN-PHATHOM PHARMACEUTICALS INC.-2025PHT02026

PATIENT
  Age: 35 Year
  Sex: Male
  Weight: 62 kg

DRUGS (4)
  1. VONOPRAZAN [Suspect]
     Active Substance: VONOPRAZAN
     Indication: Helicobacter infection
     Dosage: 20 MG, 2X/DAY
     Route: 048
     Dates: start: 20250629, end: 20250712
  2. FURAZOLIDONE [Suspect]
     Active Substance: FURAZOLIDONE
     Indication: Helicobacter infection
     Dosage: 0.1 G, 2X/DAY
     Route: 048
     Dates: start: 20250629, end: 20250712
  3. DOXYCYCLINE HYDROCHLORIDE [Suspect]
     Active Substance: DOXYCYCLINE HYDROCHLORIDE
     Indication: Helicobacter infection
     Dosage: 0.1 G, 2X/DAY
     Route: 048
     Dates: start: 20250629, end: 20250712
  4. BISMUTH [Suspect]
     Active Substance: BISMUTH SUBSALICYLATE
     Indication: Helicobacter infection
     Dosage: 200 MG, 3X/DAY
     Route: 048
     Dates: start: 20250629, end: 20250712

REACTIONS (1)
  - Interstitial lung disease [Recovering/Resolving]

NARRATIVE: CASE EVENT DATE: 20250711
